FAERS Safety Report 11651792 (Version 1)
Quarter: 2015Q4

REPORT INFORMATION
  Report Type: Spontaneous
  Country: US (occurrence: None)
  Receive Date: 20151021
  Receipt Date: 20151021
  Transmission Date: 20160304
  Serious: Yes (Other)
  Sender: FDA-Public Use
  Company Number: None

PATIENT
  Age: 47 Year
  Sex: Female

DRUGS (6)
  1. ENBREL [Suspect]
     Active Substance: ETANERCEPT
     Indication: ANKYLOSING SPONDYLITIS
     Route: 058
     Dates: start: 20150929, end: 20151019
  2. MULTIVITAMIN [Concomitant]
     Active Substance: VITAMINS
  3. METHOTREXATE [Concomitant]
     Active Substance: METHOTREXATE
  4. ULTREAM [Concomitant]
  5. FOLIC ACID. [Concomitant]
     Active Substance: FOLIC ACID
  6. ACARBOSE. [Concomitant]
     Active Substance: ACARBOSE

REACTIONS (4)
  - Injection site swelling [None]
  - Injection site reaction [None]
  - Injection site pain [None]
  - Injection site erythema [None]

NARRATIVE: CASE EVENT DATE: 20151019
